FAERS Safety Report 5781444-2 (Version None)
Quarter: 2008Q2

REPORT INFORMATION
  Report Type: 
  Country: None (occurrence: None)
  Receive Date: 20080623
  Receipt Date: 20080612
  Transmission Date: 20081010
  Serious: Yes (Disabling, Other)
  Sender: FDA-Public Use
  Company Number: US-ROCHE-385564

PATIENT
  Sex: Male
  Weight: 84.4 kg

DRUGS (6)
  1. ACCUTANE [Suspect]
     Indication: ACNE
     Route: 048
     Dates: start: 20000719, end: 20000815
  2. ACCUTANE [Suspect]
     Route: 048
     Dates: start: 20000816, end: 20000919
  3. ACCUTANE [Suspect]
     Route: 048
     Dates: start: 20000920, end: 20001017
  4. ACCUTANE [Suspect]
     Route: 048
     Dates: start: 20001018, end: 20001114
  5. ACCUTANE [Suspect]
     Dosage: THE PATIENT WAS TAKING ISOTRETINOIN AN ALTERNATING DOSE OF 40 MG / 20 MG EVERY OTHER DAY
     Route: 048
     Dates: start: 20001115, end: 20001212
  6. ACCUTANE [Suspect]
     Route: 048
     Dates: start: 20001213, end: 20010131

REACTIONS (11)
  - CHEILITIS [None]
  - COLITIS [None]
  - CROHN'S DISEASE [None]
  - EPISTAXIS [None]
  - FRACTURE [None]
  - ILEITIS [None]
  - INFLAMMATORY BOWEL DISEASE [None]
  - INTESTINAL HAEMORRHAGE [None]
  - INTESTINAL OBSTRUCTION [None]
  - JOINT DISLOCATION [None]
  - RECTAL HAEMORRHAGE [None]
